FAERS Safety Report 5708618-0 (Version None)
Quarter: 2008Q2

REPORT INFORMATION
  Report Type: 
  Country: None (occurrence: None)
  Receive Date: 20080417
  Receipt Date: 20080414
  Transmission Date: 20081010
  Serious: Yes (Life-Threatening)
  Sender: FDA-Public Use
  Company Number: JP-SANOFI-SYNTHELABO-F01200800355

PATIENT
  Sex: Male
  Weight: 75 kg

DRUGS (6)
  1. GASTER D [Concomitant]
     Indication: GASTRIC DISORDER
     Dosage: 10 MG
     Route: 065
     Dates: start: 20071207
  2. BLOPRESS [Concomitant]
     Dosage: 4 MG
     Route: 065
     Dates: start: 20071207
  3. EVIPROSTAT [Concomitant]
     Dosage: 8 UNIT
     Route: 048
     Dates: start: 20071112
  4. ASPIRIN [Concomitant]
     Indication: CEREBRAL ISCHAEMIA
     Dosage: 100 MG
     Route: 048
     Dates: start: 20071002
  5. LIVALO [Concomitant]
     Dosage: 1 UNIT
     Route: 048
     Dates: start: 20071207
  6. CLOPIDOGREL [Suspect]
     Indication: CEREBRAL ISCHAEMIA
     Route: 048
     Dates: start: 20071003, end: 20071226

REACTIONS (1)
  - AORTIC DISSECTION [None]
